FAERS Safety Report 22350459 (Version 1)
Quarter: 2023Q2

REPORT INFORMATION
  Report Type: Spontaneous
  Country: US (occurrence: None)
  Receive Date: 20230520
  Receipt Date: 20230520
  Transmission Date: 20230721
  Serious: Yes (Death)
  Sender: FDA-Public Use
  Company Number: None

PATIENT
  Age: 67 Year
  Sex: Male

DRUGS (1)
  1. BRENTUXIMAB [Suspect]
     Active Substance: BRENTUXIMAB
     Indication: Hodgkin^s disease
     Dates: start: 20230330, end: 20230330

REACTIONS (3)
  - Pneumonia [None]
  - Pulmonary fibrosis [None]
  - Pulmonary thrombosis [None]

NARRATIVE: CASE EVENT DATE: 20230423
